FAERS Safety Report 6209907-6 (Version None)
Quarter: 2009Q2

REPORT INFORMATION
  Report Type: 
  Country: None (occurrence: None)
  Receive Date: 20090601
  Receipt Date: 20090518
  Transmission Date: 20091009
  Serious: Yes (Disabling, Other)
  Sender: FDA-Public Use
  Company Number: GB-PFIZER INC-2009214407

PATIENT
  Age: 49 Year

DRUGS (5)
  1. CHAMPIX [Suspect]
     Indication: SMOKING CESSATION THERAPY
     Dosage: 0.5 MG, 1X/DAY
     Route: 048
     Dates: start: 20090316, end: 20090323
  2. CHAMPIX [Suspect]
     Dosage: 1 MG, 2X/DAY
     Dates: start: 20090323, end: 20090401
  3. CLIMAGEST [Concomitant]
     Indication: MENOPAUSAL SYMPTOMS
     Dosage: 2 MG, UNK
     Route: 048
     Dates: start: 20020211
  4. ACETAMINOPHEN W/ CODEINE [Concomitant]
     Dosage: 8 MG, UNK
     Route: 048
  5. LEVOTHYROXINE [Concomitant]
     Indication: HYPOTHYROIDISM
     Dosage: 50 UG, UNK
     Route: 048
     Dates: start: 20060703

REACTIONS (18)
  - ABDOMINAL PAIN [None]
  - ACTIVITIES OF DAILY LIVING IMPAIRED [None]
  - CONFUSIONAL STATE [None]
  - CRYING [None]
  - DYSPEPSIA [None]
  - EPISTAXIS [None]
  - FEELING ABNORMAL [None]
  - HEADACHE [None]
  - HYPERTENSION [None]
  - IMPAIRED DRIVING ABILITY [None]
  - INSOMNIA [None]
  - MENTAL IMPAIRMENT [None]
  - NAUSEA [None]
  - NIGHT SWEATS [None]
  - NIGHTMARE [None]
  - PALPITATIONS [None]
  - PANIC REACTION [None]
  - VOMITING [None]
